FAERS Safety Report 12390770 (Version 2)
Quarter: 2016Q3

REPORT INFORMATION
  Report Type: Spontaneous
  Country: US (occurrence: US)
  Receive Date: 20160520
  Receipt Date: 20160711
  Transmission Date: 20161109
  Serious: No
  Sender: FDA-Public Use
  Company Number: US-GLAXOSMITHKLINE-US2016071256

PATIENT
  Sex: Female

DRUGS (2)
  1. TRANSDERM SCOP [Suspect]
     Active Substance: SCOPOLAMINE
     Indication: MOTION SICKNESS
     Dosage: UNK
  2. TRANSDERM SCOP [Suspect]
     Active Substance: SCOPOLAMINE
     Indication: TINNITUS
     Dosage: UNK
     Dates: start: 20160422, end: 20160425

REACTIONS (5)
  - Headache [Recovered/Resolved]
  - Product quality issue [Unknown]
  - Drug prescribing error [Unknown]
  - Off label use [Unknown]
  - Drug ineffective [Unknown]

NARRATIVE: CASE EVENT DATE: 20160422
